FAERS Safety Report 5204160-4 (Version None)
Quarter: 2007Q1

REPORT INFORMATION
  Report Type: 
  Country: None (occurrence: None)
  Receive Date: 20070110
  Receipt Date: 20051220
  Transmission Date: 20070707
  Serious: Yes (Hospitalization)
  Sender: FDA-Public Use
  Company Number: US-BRISTOL-MYERS SQUIBB COMPANY-13224126

PATIENT
  Age: 37 Year
  Sex: Male
  Weight: 109 kg

DRUGS (7)
  1. ABILIFY [Suspect]
     Indication: BIPOLAR DISORDER
     Route: 048
     Dates: start: 20040401, end: 20050907
  2. LITHIUM CARBONATE [Concomitant]
  3. WELLBUTRIN [Concomitant]
  4. CELEXA [Concomitant]
  5. ATENOLOL [Concomitant]
  6. THYROID TAB [Concomitant]
  7. PROVIGIL [Concomitant]
     Dosage: DOSAGE: 3-5 TIMES WEEKLY

REACTIONS (3)
  - PARKINSONISM [None]
  - SALIVARY HYPERSECRETION [None]
  - TARDIVE DYSKINESIA [None]
